FAERS Safety Report 5981468-6 (Version None)
Quarter: 2008Q4

REPORT INFORMATION
  Report Type: 
  Country: None (occurrence: None)
  Receive Date: 20081126
  Receipt Date: 20071129
  Transmission Date: 20090506
  Serious: Yes (Hospitalization)
  Sender: FDA-Public Use
  Company Number: 2007BH009440

PATIENT
  Age: 68 Year
  Sex: Male
  Weight: 67.586 kg

DRUGS (1)
  1. DIANEAL [Suspect]
     Indication: PERITONEAL DIALYSIS
     Dosage: 15 L;EVERY DAY;IP
     Route: 033

REACTIONS (1)
  - PERITONITIS [None]
